FAERS Safety Report 24317906 (Version 1)
Quarter: 2024Q3

REPORT INFORMATION
  Report Type: Spontaneous
  Country: US (occurrence: None)
  Receive Date: 20240913
  Receipt Date: 20240913
  Transmission Date: 20241016
  Serious: No
  Sender: ASTRAZENECA
  Company Number: 2024A206726

PATIENT
  Sex: Male

DRUGS (1)
  1. CALQUENCE [Suspect]
     Active Substance: ACALABRUTINIB
     Route: 048

REACTIONS (10)
  - Feeling abnormal [Unknown]
  - Haemoglobin decreased [Unknown]
  - Platelet count decreased [Unknown]
  - Chills [Unknown]
  - Nausea [Unknown]
  - Tremor [Unknown]
  - Influenza [Unknown]
  - Asthenia [Unknown]
  - White blood cell count increased [Unknown]
  - Lymphocyte count increased [Unknown]
